FAERS Safety Report 4827116-X (Version None)
Quarter: 2005Q4

REPORT INFORMATION
  Report Type: 
  Country: None (occurrence: None)
  Receive Date: 20051114
  Receipt Date: 20051109
  Transmission Date: 20060501
  Serious: Yes (Life-Threatening, Hospitalization)
  Sender: FDA-Public Use
  Company Number: FI-GLAXOSMITHKLINE-B0400146A

PATIENT
  Age: 83 Year
  Sex: Female

DRUGS (8)
  1. ZINACEF [Suspect]
     Indication: PYELONEPHRITIS
     Dosage: 4.5G PER DAY
     Route: 042
     Dates: start: 20040916, end: 20040917
  2. ZINACEF [Suspect]
     Indication: RENAL CYST INFECTION
     Dosage: 4.5G PER DAY
     Route: 042
     Dates: start: 20040923, end: 20041011
  3. TAZOCIN [Suspect]
     Indication: ERYSIPELAS
     Dosage: 12G PER DAY
     Route: 042
     Dates: start: 20040917, end: 20040920
  4. REMERON [Suspect]
     Indication: DEPRESSION
     Dosage: 15MG PER DAY
     Route: 048
     Dates: start: 20041005, end: 20041013
  5. ZYRTEC [Concomitant]
     Indication: HYPERSENSITIVITY
     Dosage: 10MG PER DAY
     Route: 048
     Dates: end: 20051013
  6. CIPROXIN [Concomitant]
     Indication: URINARY TRACT INFECTION
     Dosage: 1G PER DAY
     Route: 048
     Dates: start: 20040921, end: 20040923
  7. TAVANIC [Concomitant]
     Indication: RENAL CYST INFECTION
     Dosage: 1G PER DAY
     Route: 048
     Dates: start: 20040929, end: 20041012
  8. TRIKOZOL [Concomitant]
     Indication: DIARRHOEA
     Dosage: 1.2G PER DAY
     Route: 048
     Dates: start: 20041005, end: 20041013

REACTIONS (2)
  - AGRANULOCYTOSIS [None]
  - DIFFERENTIAL WHITE BLOOD CELL COUNT [None]
